FAERS Safety Report 5915890-0 (Version None)
Quarter: 2008Q4

REPORT INFORMATION
  Report Type: 
  Country: None (occurrence: None)
  Receive Date: 20081010
  Receipt Date: 20081003
  Transmission Date: 20090506
  Serious: Yes (Other)
  Sender: FDA-Public Use
  Company Number: US-PFIZER INC-2008083932

PATIENT
  Sex: Female
  Weight: 107.5 kg

DRUGS (11)
  1. LYRICA [Suspect]
     Indication: FIBROMYALGIA
     Route: 048
  2. SERZONE [Concomitant]
     Indication: PANIC ATTACK
  3. SERZONE [Concomitant]
     Indication: ANXIETY
  4. XANAX [Concomitant]
     Indication: PANIC ATTACK
  5. XANAX [Concomitant]
     Indication: ANXIETY
  6. PROVERA [Concomitant]
  7. ANALGESICS [Concomitant]
     Indication: BACK DISORDER
  8. NEXIUM [Concomitant]
  9. PEPCID [Concomitant]
  10. MONTELUKAST SODIUM [Concomitant]
  11. PROAIR HFA [Concomitant]
     Indication: ASTHMA

REACTIONS (3)
  - CATARACT [None]
  - HAEMATOMA [None]
  - THROMBOSIS [None]
